FAERS Safety Report 6253056-8 (Version None)
Quarter: 2009Q2

REPORT INFORMATION
  Report Type: 
  Country: None (occurrence: None)
  Receive Date: 20090629
  Receipt Date: 20090615
  Transmission Date: 20091009
  Serious: Yes (Death)
  Sender: FDA-Public Use
  Company Number: PAR_03037_2009

PATIENT
  Age: 69 Year
  Sex: Female
  Weight: 104 kg

DRUGS (24)
  1. MINOXIDIL [Suspect]
     Indication: HYPERTENSION
     Dosage: (2.5 MG ORAL)
     Route: 048
  2. ALLOPURINOL [Suspect]
     Indication: DRUG USE FOR UNKNOWN INDICATION
     Dosage: (300 MG ORAL)
     Route: 048
  3. ENALAPRIL MALEATE [Suspect]
     Indication: HYPERTENSION
     Dosage: (2.5 MG BID ORAL)
     Route: 048
  4. FOSINOPRIL SODIUM [Suspect]
     Indication: HYPERTENSION
     Dosage: (10 MG QD ORAL)
     Route: 048
  5. VANCOMYCIN [Suspect]
     Indication: ANTIBIOTIC THERAPY
     Dosage: (500 MG 1X/12 HOURS INTRAVENOUS))
     Route: 042
  6. CLOPIDOGREL [Suspect]
     Indication: ANTIBIOTIC THERAPY
     Dosage: (75 MG ORAL)
     Route: 048
  7. CEFEPIME [Suspect]
     Indication: ANTIBIOTIC THERAPY
     Dosage: (1 G INTRAVENOUS))
     Route: 042
  8. ASPIRIN [Concomitant]
  9. CLONIDINE [Concomitant]
  10. DOXERCALCIFEROL [Concomitant]
  11. FOLIC ACID [Concomitant]
  12. PANTOPRZOLE [Concomitant]
  13. PAROXETINE HCL [Concomitant]
  14. RISPERIDONE [Concomitant]
  15. SIMVASTATIN [Concomitant]
  16. VALSARTAN [Concomitant]
  17. MULTIVITAMIN /00831701/ [Concomitant]
  18. EPOETIN ALFA [Concomitant]
  19. FUROSEMIDE [Concomitant]
  20. METOPROLOL TARTRATE [Concomitant]
  21. NIFEDIPINE [Concomitant]
  22. NITROGLYCERIN [Concomitant]
  23. ACETAMINOPHEN AND OXYCODONE HCL [Concomitant]
  24. ACETAMINOPHEN [Concomitant]

REACTIONS (11)
  - BLOOD CREATININE INCREASED [None]
  - BLOOD PRESSURE INCREASED [None]
  - BODY TEMPERATURE INCREASED [None]
  - CARDIO-RESPIRATORY ARREST [None]
  - CEREBROVASCULAR ACCIDENT [None]
  - HAEMATOCRIT DECREASED [None]
  - HAEMOGLOBIN DECREASED [None]
  - PLATELET COUNT DECREASED [None]
  - STEVENS-JOHNSON SYNDROME [None]
  - TOXIC EPIDERMAL NECROLYSIS [None]
  - URINARY TRACT INFECTION STAPHYLOCOCCAL [None]
